FAERS Safety Report 13630067 (Version 1)
Quarter: 2017Q2

REPORT INFORMATION
  Report Type: Spontaneous
  Country: US (occurrence: US)
  Receive Date: 20170531
  Receipt Date: 20170531
  Transmission Date: 20170830
  Serious: No
  Sender: FDA-Public Use
  Company Number: US-ASTELLAS-1276860

PATIENT
  Age: 88 Year
  Sex: Female

DRUGS (2)
  1. TARCEVA [Suspect]
     Active Substance: ERLOTINIB HYDROCHLORIDE
     Indication: OESOPHAGEAL CARCINOMA
     Route: 065
     Dates: start: 201307
  2. TARCEVA [Suspect]
     Active Substance: ERLOTINIB HYDROCHLORIDE
     Route: 065

REACTIONS (3)
  - Asthenia [Unknown]
  - Oesophageal discomfort [Unknown]
  - Mobility decreased [Unknown]
